FAERS Safety Report 6592983-9 (Version None)
Quarter: 2010Q1

REPORT INFORMATION
  Report Type: 
  Country: None (occurrence: None)
  Receive Date: 20100212
  Receipt Date: 20100122
  Transmission Date: 20100710
  Serious: Yes (Congenital Anomaly)
  Sender: FDA-Public Use
  Company Number: B0628587A

PATIENT

DRUGS (3)
  1. LAMOTRIGINE [Suspect]
     Indication: EPILEPSY
     Dosage: INTRAUTERINE
     Route: 015
  2. VALPROIC ACID (FORMULATION UNKNOWN) (VALPROIC ACID) (GENERIC) [Suspect]
     Indication: EPILEPSY
     Dosage: INTRAUTERINE
     Route: 015
  3. FOLIC ACID (FORMULATION UNKNOWN) (FOLIC ACID) (GENERIC) [Suspect]
     Dosage: TRANSPLACENTARY
     Route: 064

REACTIONS (2)
  - LIMB MALFORMATION [None]
  - MATERNAL DRUGS AFFECTING FOETUS [None]
